FAERS Safety Report 8144792-7 (Version None)
Quarter: 2012Q1

REPORT INFORMATION
  Report Type: 
  Country: None (occurrence: None)
  Receive Date: 20120217
  Receipt Date: 20120212
  Transmission Date: 20120608
  Serious: Yes (Hospitalization)
  Sender: FDA-Public Use
  Company Number: US-ACTELION-A-NJ2012-60787

PATIENT

DRUGS (4)
  1. TRACLEER [Suspect]
     Indication: PULMONARY ARTERIAL HYPERTENSION
     Dosage: UNK
     Route: 048
     Dates: start: 20120123
  2. VENTAVIS [Suspect]
     Dosage: UNK
     Route: 055
     Dates: start: 20120201
  3. ADCIRCA [Concomitant]
  4. VENTAVIS [Suspect]
     Indication: PULMONARY ARTERIAL HYPERTENSION
     Dosage: UNK
     Route: 055
     Dates: start: 20120126, end: 20120201

REACTIONS (4)
  - FLATULENCE [None]
  - DIZZINESS [None]
  - HEADACHE [None]
  - DRUG DOSE OMISSION [None]
